FAERS Safety Report 24662786 (Version 1)
Quarter: 2024Q4

REPORT INFORMATION
  Report Type: Spontaneous
  Country: GB (occurrence: None)
  Receive Date: 20241126
  Receipt Date: 20241126
  Transmission Date: 20250114
  Serious: Yes (Other)
  Sender: Alvotech
  Company Number: None

PATIENT
  Age: 46 Year
  Sex: Female

DRUGS (6)
  1. USTEKINUMAB [Suspect]
     Active Substance: USTEKINUMAB
     Indication: Product used for unknown indication
     Dosage: 90MG/1ML SOLUTION FOR INJECTION PRE-FILLED?SYRINGES
     Route: 065
  2. MESALAMINE [Concomitant]
     Active Substance: MESALAMINE
  3. FOLIC ACID [Concomitant]
     Active Substance: FOLIC ACID
     Dosage: 5MG TABLETS
  4. CHOLECALCIFEROL [Concomitant]
     Active Substance: CHOLECALCIFEROL
  5. MESALAMINE [Concomitant]
     Active Substance: MESALAMINE
  6. USTEKINUMAB [Suspect]
     Active Substance: USTEKINUMAB
     Indication: Product used for unknown indication
     Dosage: 90MG/1ML SOLUTION FOR INJECTION PRE-FILLED?SYRINGES
     Route: 065

REACTIONS (2)
  - Anosmia [Unknown]
  - Ageusia [Unknown]
